FAERS Safety Report 7227804-4 (Version None)
Quarter: 2011Q1

REPORT INFORMATION
  Report Type: 
  Country: None (occurrence: None)
  Receive Date: 20110114
  Receipt Date: 20110110
  Transmission Date: 20110831
  Serious: Yes (Hospitalization, Other)
  Sender: FDA-Public Use
  Company Number: US-JNJFOC-20110102679

PATIENT
  Sex: Male

DRUGS (7)
  1. DURAGESIC-50 [Suspect]
     Dosage: 200 UG/HR PATCH/ 100 UG/HR/ONCE IN 48 HOURS
     Route: 062
  2. METFORMIN HCL [Concomitant]
     Indication: DIABETES MELLITUS
     Route: 048
  3. OMEPRAZOLE [Concomitant]
     Indication: DYSPEPSIA
     Route: 048
  4. DURAGESIC-50 [Suspect]
     Indication: PHANTOM PAIN
     Dosage: 200 UG/HR PATCH/ 100 UG/HR/ONCE IN 48 HOURS
     Route: 062
  5. DURAGESIC-50 [Suspect]
     Indication: NEUROPATHY PERIPHERAL
     Route: 062
  6. LANTUS [Concomitant]
     Indication: DIABETES MELLITUS
     Dosage: 125 UNITS
     Route: 058
  7. HUMALOG [Concomitant]
     Indication: DIABETES MELLITUS
     Dosage: SLIDING SCALE
     Route: 058

REACTIONS (6)
  - ATRIOVENTRICULAR BLOCK [None]
  - DIABETES MELLITUS [None]
  - DRUG INEFFECTIVE [None]
  - PHANTOM PAIN [None]
  - MYOCARDIAL INFARCTION [None]
  - DEPRESSION [None]
